FAERS Safety Report 5724037-5 (Version None)
Quarter: 2008Q2

REPORT INFORMATION
  Report Type: 
  Country: None (occurrence: None)
  Receive Date: 20080428
  Receipt Date: 20080415
  Transmission Date: 20081010
  Serious: Yes (Hospitalization)
  Sender: FDA-Public Use
  Company Number: 233584J08USA

PATIENT
  Age: 68 Year
  Sex: Female
  Weight: 50.3493 kg

DRUGS (8)
  1. REBIF [Suspect]
     Indication: MULTIPLE SCLEROSIS
     Dosage: 22 MCG, 3 IN 1 WEEKS, SUBCUTANEOUS
     Route: 058
     Dates: start: 20080325
  2. DIAZEPAM [Concomitant]
  3. PROMETHAZINE [Concomitant]
  4. PRILOSEC [Concomitant]
  5. ASPIRIN [Concomitant]
  6. ANTIBIOTIC (ANTIBIOTICS) [Concomitant]
  7. TYLENOL (COTYLENOL) [Concomitant]
  8. ALEVE (CAPLET) [Concomitant]

REACTIONS (6)
  - ANXIETY [None]
  - BLOOD POTASSIUM DECREASED [None]
  - CYST [None]
  - DIZZINESS [None]
  - DYSPNOEA [None]
  - URINARY TRACT INFECTION [None]
